FAERS Safety Report 7287498-9 (Version None)
Quarter: 2011Q1

REPORT INFORMATION
  Report Type: 
  Country: None (occurrence: None)
  Receive Date: 20110211
  Receipt Date: 20110207
  Transmission Date: 20110831
  Serious: Yes (Hospitalization)
  Sender: FDA-Public Use
  Company Number: US-BRISTOL-MYERS SQUIBB COMPANY-15533839

PATIENT
  Age: 83 Year
  Sex: Female

DRUGS (1)
  1. ABILIFY [Suspect]
     Dosage: DOSE WAS DECREASED TO HALF

REACTIONS (1)
  - PSYCHOTIC DISORDER [None]
